FAERS Safety Report 12213753 (Version 1)
Quarter: 2016Q1

REPORT INFORMATION
  Report Type: Spontaneous
  Country: US (occurrence: US)
  Receive Date: 20160328
  Receipt Date: 20160328
  Transmission Date: 20160526
  Serious: No
  Sender: FDA-Public Use
  Company Number: US-MISSION PHARMACAL COMPANY-1049759

PATIENT
  Age: 17 Year
  Sex: Female

DRUGS (1)
  1. THIOLA [Suspect]
     Active Substance: TIOPRONIN
     Indication: CYSTINURIA
     Route: 065
     Dates: start: 20150913

REACTIONS (4)
  - Diarrhoea [Unknown]
  - Nephrolithiasis [Unknown]
  - Menorrhagia [Unknown]
  - Polymenorrhoea [Unknown]
